FAERS Safety Report 9788873 (Version 1)
Quarter: 2013Q4

REPORT INFORMATION
  Report Type: Spontaneous
  Country: FR (occurrence: FR)
  Receive Date: 20131230
  Receipt Date: 20131230
  Transmission Date: 20140711
  Serious: Yes (Hospitalization)
  Sender: FDA-Public Use
  Company Number: FR-GLAXOSMITHKLINE-B0954390A

PATIENT
  Age: 79 Year
  Sex: Female

DRUGS (9)
  1. ZELITREX [Suspect]
     Indication: PRODUCT USED FOR UNKNOWN INDICATION
     Dosage: 500MG PER DAY
     Route: 048
     Dates: start: 20131114, end: 20131116
  2. INEXIUM [Concomitant]
     Dosage: 20MG PER DAY
     Route: 048
  3. BACTRIM FORTE [Concomitant]
     Dosage: 1TAB THREE TIMES PER WEEK
     Route: 048
     Dates: start: 20131113, end: 20131125
  4. BORTEZOMIB [Concomitant]
     Route: 058
     Dates: start: 20131018
  5. DEXAMETHASONE [Concomitant]
     Route: 048
     Dates: start: 20131018
  6. SMECTA [Concomitant]
  7. PRIMPERAN [Concomitant]
  8. PARACETAMOL [Concomitant]
     Indication: PAIN
  9. ACUPAN [Concomitant]
     Indication: PAIN

REACTIONS (10)
  - Cerebellar syndrome [Recovered/Resolved]
  - Hallucination [Recovered/Resolved]
  - Apraxia [Recovered/Resolved]
  - Disorientation [Recovered/Resolved]
  - Clonus [Recovered/Resolved]
  - Nightmare [Recovered/Resolved]
  - Pyrexia [Recovered/Resolved]
  - Ataxia [Recovered/Resolved]
  - Dysarthria [Recovered/Resolved]
  - Agitation [Recovered/Resolved]
